FAERS Safety Report 24980993 (Version 2)
Quarter: 2025Q1

REPORT INFORMATION
  Report Type: Report from Study
  Country: US (occurrence: US)
  Receive Date: 20250218
  Receipt Date: 20250306
  Transmission Date: 20250409
  Serious: Yes (Hospitalization, Other)
  Sender: BAYER HEALTHCARE PHARMACEUTICALS INC.
  Company Number: US-BAYER-2024A145305

PATIENT
  Age: 73 Year
  Sex: Male

DRUGS (2)
  1. XOFIGO [Suspect]
     Active Substance: RADIUM RA-223 DICHLORIDE
     Indication: Hormone-refractory prostate cancer
     Dosage: 98.00 ?CI, Q4WK
     Route: 042
     Dates: start: 20240821, end: 20240821
  2. XOFIGO [Suspect]
     Active Substance: RADIUM RA-223 DICHLORIDE
     Indication: Metastases to bone
     Dosage: 98 ?CI, Q4WK
     Route: 042
     Dates: start: 20241030, end: 20241030

REACTIONS (3)
  - Full blood count decreased [Recovering/Resolving]
  - Thrombocytopenia [None]
  - Haematuria [None]

NARRATIVE: CASE EVENT DATE: 20250101
